FAERS Safety Report 16744269 (Version 1)
Quarter: 2019Q3

REPORT INFORMATION
  Report Type: Spontaneous
  Country: ZA (occurrence: ZA)
  Receive Date: 20190827
  Receipt Date: 20190827
  Transmission Date: 20191005
  Serious: Yes (Death, Other)
  Sender: FDA-Public Use
  Company Number: PHHY2019ZA197837

PATIENT
  Age: 5 Year

DRUGS (2)
  1. PREDNISOLONE. [Suspect]
     Active Substance: PREDNISOLONE
     Indication: PRODUCT USED FOR UNKNOWN INDICATION
     Dosage: UNK
     Route: 065
  2. LAMIVUDINE. [Suspect]
     Active Substance: LAMIVUDINE
     Indication: HIV INFECTION
     Dosage: UNK
     Route: 065

REACTIONS (8)
  - Immune reconstitution inflammatory syndrome associated tuberculosis [Fatal]
  - Lymph node tuberculosis [Fatal]
  - Sepsis [Unknown]
  - Vascular skin disorder [Unknown]
  - Lymphadenopathy [Fatal]
  - Lymph node pain [Fatal]
  - Pulmonary tuberculosis [Fatal]
  - Pyrexia [Fatal]
